FAERS Safety Report 6373904-0 (Version None)
Quarter: 2009Q3

REPORT INFORMATION
  Report Type: 
  Country: None (occurrence: None)
  Receive Date: 20090924
  Receipt Date: 20090518
  Transmission Date: 20100115
  Serious: No
  Sender: FDA-Public Use
  Company Number: US-ASTRAZENECA-2009UW12607

PATIENT
  Age: 48 Year
  Sex: Female
  Weight: 96.6 kg

DRUGS (8)
  1. SEROQUEL [Suspect]
     Indication: SLEEP DISORDER
     Route: 048
  2. XYREM [Suspect]
     Indication: SOMNOLENCE
     Route: 048
     Dates: start: 20090301
  3. CRESTOR [Concomitant]
     Indication: BLOOD CHOLESTEROL INCREASED
  4. BUPROPION HYDROCHLORIDE [Concomitant]
     Indication: DEPRESSION
  5. ZIPRASIDONE HCL [Concomitant]
     Indication: MANIA
  6. LEVOTHYROXINE SODIUM [Concomitant]
     Indication: HYPOTHYROIDISM
  7. NAPROXEN [Concomitant]
     Indication: DYSMENORRHOEA
  8. DESVENLAFAXINE [Concomitant]
     Indication: DEPRESSION

REACTIONS (3)
  - DISTURBANCE IN ATTENTION [None]
  - IRRITABILITY [None]
  - SOMNOLENCE [None]
